FAERS Safety Report 9462500 (Version 1)
Quarter: 2013Q3

REPORT INFORMATION
  Report Type: Spontaneous
  Country: US (occurrence: None)
  Receive Date: 20130815
  Receipt Date: 20130815
  Transmission Date: 20140515
  Serious: Yes (Hospitalization)
  Sender: FDA-Public Use
  Company Number: None

PATIENT
  Age: 58 Year
  Sex: Male
  Weight: 79.9 kg

DRUGS (5)
  1. CISPLATIN [Suspect]
  2. ACETAMINOPHEN LQUID [Concomitant]
  3. CIPROFLOXACIN [Concomitant]
  4. FENTANYL PATCH [Concomitant]
  5. MORPHINE [Concomitant]

REACTIONS (3)
  - Stomatitis [None]
  - Febrile neutropenia [None]
  - Oropharyngeal pain [None]
